FAERS Safety Report 4846317-8 (Version None)
Quarter: 2005Q4

REPORT INFORMATION
  Report Type: 
  Country: None (occurrence: None)
  Receive Date: 20051206
  Receipt Date: 20031009
  Transmission Date: 20060501
  Serious: Yes (Hospitalization)
  Sender: FDA-Public Use
  Company Number: CA-SANOFI-SYNTHELABO-D01200301409

PATIENT
  Sex: Male
  Weight: 77 kg

DRUGS (14)
  1. SR57746 OR PLACEBO [Suspect]
     Route: 048
     Dates: start: 20030908
  2. OXALIPLATIN [Suspect]
     Route: 042
     Dates: start: 20030929, end: 20030929
  3. FLUOROURACIL [Suspect]
     Dosage: 400 MG/M2 AS IV BOLUS THEN 600 MG/M2 AS 22 HOURS CONTINUOUS INFUSION D1-D2 Q2W
     Route: 042
     Dates: start: 20030929, end: 20031001
  4. LEUCOVORIN [Suspect]
     Dosage: 200 MG/M2 AS 2 HOURS INFUSION ON D1-D2 Q2W
     Route: 042
     Dates: start: 20030929, end: 20030930
  5. COUMADIN [Concomitant]
     Dosage: UNK
     Route: 065
     Dates: start: 19970101
  6. AMIODARONE [Concomitant]
     Dosage: UNK
     Route: 065
     Dates: start: 20010101
  7. METOPROLOL [Concomitant]
     Dosage: UNK
     Route: 065
     Dates: start: 19971001
  8. COLACE [Concomitant]
     Dosage: UNK
     Route: 065
     Dates: start: 20030908
  9. SENOKOT [Concomitant]
     Dosage: UNK
     Route: 065
     Dates: start: 20030908
  10. IMODIUM [Concomitant]
     Dosage: UNK
     Route: 065
     Dates: start: 20030908
  11. NILSTAT [Concomitant]
     Dosage: UNK
     Route: 065
     Dates: start: 20030917
  12. ONDANSETRON [Concomitant]
     Dosage: UNK
     Route: 065
     Dates: start: 20030908
  13. DEXAMETHASONE [Concomitant]
     Dosage: UNK
     Route: 065
     Dates: start: 20030908
  14. PROCHLORPERAZINE [Concomitant]
     Dosage: UNK
     Route: 065
     Dates: start: 20030908

REACTIONS (3)
  - ACTIVATED PARTIAL THROMBOPLASTIN TIME PROLONGED [None]
  - ATRIAL FIBRILLATION [None]
  - ELECTROCARDIOGRAM ST SEGMENT ABNORMAL [None]
